FAERS Safety Report 8305725-3 (Version None)
Quarter: 2012Q2

REPORT INFORMATION
  Report Type: 
  Country: None (occurrence: None)
  Receive Date: 20120423
  Receipt Date: 20120417
  Transmission Date: 20120825
  Serious: Yes (Hospitalization)
  Sender: FDA-Public Use
  Company Number: JP-EISAI INC-E2090-02088-SPO-JP

PATIENT
  Age: 73 Year
  Sex: Female

DRUGS (5)
  1. VESICARE [Concomitant]
     Dosage: 5 MG DAILY
     Route: 048
  2. CARBIDOPA AND LEVODOPA [Concomitant]
     Dosage: 450 MG DAILY
     Route: 048
  3. CLONAZEPAM [Concomitant]
     Dosage: 0.25 MG DAILY
     Route: 048
  4. MIRAPEX [Concomitant]
     Dosage: 3 MG DAILY
     Route: 048
  5. ZONISAMIDE [Suspect]
     Indication: PARKINSON'S DISEASE
     Route: 048

REACTIONS (1)
  - DELUSION [None]
